FAERS Safety Report 4389987-3 (Version None)
Quarter: 2004Q2

REPORT INFORMATION
  Report Type: 
  Country: None (occurrence: None)
  Receive Date: 20040630
  Receipt Date: 20040621
  Transmission Date: 20050107
  Serious: Yes (Hospitalization)
  Sender: FDA-Public Use
  Company Number: 2004039377

PATIENT
  Age: 54 Year
  Sex: Female

DRUGS (7)
  1. ZITHROMAX [Suspect]
     Indication: UPPER RESPIRATORY TRACT INFLAMMATION
     Dosage: 500 MG (500 MG, 1 IN 1 D), ORAL
     Route: 048
     Dates: start: 20040607, end: 20040608
  2. CEFCAPENE PIVOXIL HYDROCHLRODE (CEFCAPENE PIVOXIL HYDROCHLORIDE) [Suspect]
     Indication: UPPER RESPIRATORY TRACT INFLAMMATION
     Dosage: ORAL
     Route: 048
     Dates: start: 20040604, end: 20040608
  3. LOXOPROFEN SODIUM (LOXOPROFEN SODIUM) [Suspect]
     Indication: UPPER RESPIRATORY TRACT INFLAMMATION
     Dosage: 1 IN 1 D, ORAL
     Route: 048
     Dates: start: 20040607, end: 20040607
  4. CARBOCISTEIN (CARBOCISTEINE) [Suspect]
     Indication: UPPER RESPIRATORY TRACT INFLAMMATION
     Dosage: 500 MG (500 MG, 1 IN 1 D) , ORAL
     Route: 048
     Dates: start: 20040607, end: 20040607
  5. ISEPAMICIN SULFATE (ISEPAMICIN SULFATE) [Concomitant]
  6. SERRAPEPTASE (SERRAPEPTASE) [Concomitant]
  7. PARACETAMOL (PARACETAMOL) [Concomitant]

REACTIONS (1)
  - HEPATITIS ACUTE [None]
